FAERS Safety Report 9876582 (Version 2)
Quarter: 2014Q1

REPORT INFORMATION
  Report Type: Other
  Country: US (occurrence: US)
  Receive Date: 20140206
  Receipt Date: 20140206
  Transmission Date: 20141002
  Serious: No
  Sender: FDA-Public Use
  Company Number: US-ACORDA-ACO_37422_2013

PATIENT
  Sex: Female

DRUGS (9)
  1. AMPYRA [Suspect]
     Indication: MULTIPLE SCLEROSIS
     Dosage: 10 MG, UNK
     Dates: start: 20130314
  2. LYRICA [Suspect]
     Indication: MYALGIA
     Dosage: 100 MG, TID
     Route: 048
  3. MACRODANTIN [Concomitant]
     Indication: URINARY TRACT DISORDER
     Dosage: 100 MG, QD
     Route: 048
  4. FLUOXETINE [Concomitant]
     Indication: DEPRESSION
     Dosage: 20 MG, QD AM
     Route: 048
  5. VERAPAMIL [Concomitant]
     Indication: MIGRAINE
     Dosage: 120 MG, QD
     Route: 048
  6. ROPINIROLE HYDROCHLORIDE [Concomitant]
     Indication: RESTLESS LEGS SYNDROME
     Dosage: 0.5 MG, TID
     Route: 048
  7. CARBAMAZEPINE [Concomitant]
     Indication: MUSCLE SPASMS
     Dosage: 200 MG, BID
     Route: 048
  8. VALIUM [Concomitant]
     Indication: MUSCLE SPASMS
     Dosage: 5 MG, BID
  9. REBIF [Concomitant]
     Indication: MULTIPLE SCLEROSIS
     Dosage: 44 ?G, THREE TIMES WEEKLY
     Route: 058

REACTIONS (1)
  - Oedema peripheral [Not Recovered/Not Resolved]
